FAERS Safety Report 9332540 (Version 3)
Quarter: 2013Q3

REPORT INFORMATION
  Report Type: Spontaneous
  Country: IT (occurrence: IT)
  Receive Date: 20130603
  Receipt Date: 20130819
  Transmission Date: 20140515
  Serious: Yes (Hospitalization)
  Sender: FDA-Public Use
  Company Number: SYM-2013-04270

PATIENT
  Age: 74 Year
  Sex: Male

DRUGS (17)
  1. 5-FU [Suspect]
     Indication: COLORECTAL CANCER METASTATIC
     Route: 040
     Dates: start: 20130111, end: 20130111
  2. IRINOTECAN [Suspect]
     Indication: COLORECTAL CANCER METASTATIC
     Route: 041
     Dates: start: 20130111, end: 20130111
  3. LEUCOVORIN [Suspect]
     Route: 041
     Dates: start: 20130111, end: 20130111
  4. AFLIBERCEPT [Suspect]
     Indication: COLORECTAL CANCER METASTATIC
     Route: 041
     Dates: start: 20130111, end: 20130111
  5. HEPARIN GROUP (HEPARIN GROUP) [Concomitant]
  6. ANGIOTENSIN II ANTAGONISTS (ANGIOTENSIS II ANTAGONISTS AND CALCIUM CHANNE) [Concomitant]
  7. DIURETICS (DIURETICS) [Concomitant]
  8. ANALGESICS (ANALGESICS) [Concomitant]
  9. LOPERAMIDE (LOPERAMIDE)(LOPERAMIDE) [Concomitant]
  10. MINERAL SUPPLEMENTS (MINERAL SUPPLEMENTS) [Concomitant]
  11. PROTON PUMP INHIBITORS (PROTON PUMP INHIBITORS) [Concomitant]
  12. G-CSF (GRANULOCYTE COLONY STIMULATING FACTOR)(GRANULOCYTE COLONY STIMULATING FACTOR) [Concomitant]
  13. ANTICHOLINERGICS (ANTICHOLINERGICS) [Concomitant]
  14. CORTICOSTEROIDS (CORTICOSTEROIDS) [Concomitant]
  15. SEROTONIN ANTAGONISTS (SEROTONIN ANTAGONISTS) [Concomitant]
  16. ANTIFUNGALS (ANTIFUNGALS FOR DERMATOLOGICAL USE) [Concomitant]
  17. ACECLOFENAC (ACECLOFENAC)(ACECLOFENAC) [Concomitant]

REACTIONS (5)
  - Toxicity to various agents [None]
  - Stomatitis [None]
  - Asthenia [None]
  - Diarrhoea [None]
  - Neutropenia [None]
